FAERS Safety Report 12220274 (Version 1)
Quarter: 2016Q1

REPORT INFORMATION
  Report Type: Spontaneous
  Country: US (occurrence: None)
  Receive Date: 20160329
  Receipt Date: 20160329
  Transmission Date: 20160526
  Serious: No
  Sender: FDA-Public Use
  Company Number: None

PATIENT
  Sex: Female

DRUGS (17)
  1. LETROZOLE. [Concomitant]
     Active Substance: LETROZOLE
  2. AUGMENTIN [Concomitant]
     Active Substance: AMOXICILLIN\CLAVULANATE POTASSIUM
  3. GABAPENTIN. [Concomitant]
     Active Substance: GABAPENTIN
  4. DOXYCYCLINE. [Concomitant]
     Active Substance: DOXYCYCLINE
  5. SIMVASTATIN. [Concomitant]
     Active Substance: SIMVASTATIN
  6. PREDNISONE. [Concomitant]
     Active Substance: PREDNISONE
  7. ACYCLOVIR. [Concomitant]
     Active Substance: ACYCLOVIR
  8. ATROVENT [Concomitant]
     Active Substance: IPRATROPIUM BROMIDE
  9. IBRANCE [Suspect]
     Active Substance: PALBOCICLIB
     Indication: BREAST CANCER
     Route: 048
     Dates: start: 20151204
  10. CARVEDILOL. [Concomitant]
     Active Substance: CARVEDILOL
  11. LOSARTAN. [Concomitant]
     Active Substance: LOSARTAN
  12. AMOXICILLIN. [Concomitant]
     Active Substance: AMOXICILLIN
  13. DEXILANT [Concomitant]
     Active Substance: DEXLANSOPRAZOLE
  14. PROAIR HFA [Concomitant]
     Active Substance: ALBUTEROL SULFATE
  15. HYDROMORPHONE [Concomitant]
     Active Substance: HYDROMORPHONE
  16. ONDANSETRON [Concomitant]
     Active Substance: ONDANSETRON
  17. EXEMESTANE. [Concomitant]
     Active Substance: EXEMESTANE

REACTIONS (1)
  - Nasal congestion [None]

NARRATIVE: CASE EVENT DATE: 2016
